FAERS Safety Report 24684525 (Version 1)
Quarter: 2024Q4

REPORT INFORMATION
  Report Type: Spontaneous
  Country: DE (occurrence: DE)
  Receive Date: 20241202
  Receipt Date: 20241202
  Transmission Date: 20250114
  Serious: Yes (Other)
  Sender: STRIDES
  Company Number: DE-STRIDES ARCOLAB LIMITED-2024SP015672

PATIENT
  Age: 55 Year
  Sex: Male

DRUGS (6)
  1. MYCOPHENOLATE MOFETIL [Suspect]
     Active Substance: MYCOPHENOLATE MOFETIL
     Indication: Chronic graft versus host disease
     Dosage: UNK
     Route: 065
     Dates: start: 2021
  2. MYCOPHENOLATE MOFETIL [Suspect]
     Active Substance: MYCOPHENOLATE MOFETIL
     Indication: Chronic graft versus host disease in eye
  3. MYCOPHENOLATE MOFETIL [Suspect]
     Active Substance: MYCOPHENOLATE MOFETIL
     Indication: Chronic graft versus host disease in skin
  4. AXATILIMAB [Suspect]
     Active Substance: AXATILIMAB
     Indication: Chronic graft versus host disease
     Dosage: UNK
     Route: 065
     Dates: start: 2022
  5. AXATILIMAB [Suspect]
     Active Substance: AXATILIMAB
     Indication: Chronic graft versus host disease in eye
  6. AXATILIMAB [Suspect]
     Active Substance: AXATILIMAB
     Indication: Chronic graft versus host disease in skin

REACTIONS (2)
  - Disease progression [Unknown]
  - Drug ineffective for unapproved indication [Unknown]
